FAERS Safety Report 11212977 (Version 3)
Quarter: 2018Q2

REPORT INFORMATION
  Report Type: Report from Study
  Country: AR (occurrence: AR)
  Receive Date: 20150623
  Receipt Date: 20180424
  Transmission Date: 20180711
  Serious: Yes (Other)
  Sender: FDA-Public Use
  Company Number: AR-BRISTOL-MYERS SQUIBB COMPANY-BMS-2015-039744

PATIENT
  Age: 66 Year
  Sex: Female

DRUGS (1)
  1. BELATACEPT [Suspect]
     Active Substance: BELATACEPT
     Indication: RENAL TRANSPLANT
     Dosage: 250 MG/ML, Q4WK
     Route: 065
     Dates: start: 20140504

REACTIONS (5)
  - Fall [Unknown]
  - Osteoporosis [Unknown]
  - Weight decreased [Recovering/Resolving]
  - Arthritis [Unknown]
  - Wrist fracture [Recovering/Resolving]

NARRATIVE: CASE EVENT DATE: 20150608
